FAERS Safety Report 24220515 (Version 1)
Quarter: 2024Q3

REPORT INFORMATION
  Report Type: Spontaneous
  Country: US (occurrence: US)
  Receive Date: 20240818
  Receipt Date: 20240818
  Transmission Date: 20241017
  Serious: No
  Sender: SANOFI AVENTIS
  Company Number: US-SA-2024SA240719

PATIENT
  Age: 38 Year
  Sex: Male

DRUGS (2)
  1. ELOCTATE [Suspect]
     Active Substance: EFMOROCTOCOG ALFA
     Indication: Factor VIII deficiency
     Dosage: 3000 U (2700-3300) SLOW IV PUSH 2 TO 3 TIMES PER WEEK ALTERNATING ONE WEEK MON AND THURS AND OTHER W
     Route: 042
     Dates: start: 201903
  2. ELOCTATE [Suspect]
     Active Substance: EFMOROCTOCOG ALFA
     Indication: Factor VIII deficiency
     Dosage: 3000 U (2700-3300) SLOW IV PUSH 2 TO 3 TIMES PER WEEK ALTERNATING ONE WEEK MON AND THURS AND OTHER W
     Route: 042
     Dates: start: 201903

REACTIONS (1)
  - Haemorrhage [Unknown]

NARRATIVE: CASE EVENT DATE: 20240802
